FAERS Safety Report 9289158 (Version 2)
Quarter: 2013Q2

REPORT INFORMATION
  Report Type: Spontaneous
  Country: CA (occurrence: CA)
  Receive Date: 20130514
  Receipt Date: 20130611
  Transmission Date: 20140414
  Serious: Yes (Hospitalization, Other)
  Sender: FDA-Public Use
  Company Number: CA-BAXTER-2013BAX016990

PATIENT
  Sex: Male

DRUGS (3)
  1. DIANEAL PD4 SOLUTION WITH 1.5% DEXTROSE AND 2.5 MEQ/L CALCIUM [Suspect]
     Indication: CONGENITAL CYSTIC KIDNEY DISEASE
     Route: 033
  2. DIANEAL PD4 SOLUTION WITH 2.5% DEXTROSE AND 2.5 MEQ/L CALCIUM [Suspect]
     Indication: CONGENITAL CYSTIC KIDNEY DISEASE
     Route: 033
  3. DIANEAL PD4 SOLUTION WITH 4.25% DEXTROSE AND 2.5 MEQ/L CALCIUM [Suspect]
     Indication: CONGENITAL CYSTIC KIDNEY DISEASE
     Route: 033

REACTIONS (4)
  - Abdominal hernia [Recovered/Resolved]
  - Abdominal strangulated hernia [Recovered/Resolved]
  - Post procedural complication [Recovered/Resolved]
  - Fluid retention [Recovered/Resolved]
